FAERS Safety Report 8865809 (Version 1)
Quarter: 2012Q4

REPORT INFORMATION
  Report Type: 
  Country: US (occurrence: US)
  Receive Date: 20121024
  Receipt Date: 20121024
  Transmission Date: 20130627
  Serious: No
  Sender: FDA-Public Use
  Company Number: US-AMGEN-USASP2012001328

PATIENT
  Age: 63 Year
  Sex: Female
  Weight: 111.11 kg

DRUGS (6)
  1. ENBREL [Suspect]
     Indication: PSORIASIS
     Dosage: 50 mg, 2 times/wk
     Dates: start: 20111229
  2. METFORMIN [Concomitant]
  3. METOPROLOL [Concomitant]
     Dosage: UNK
  4. VERAPAMIL [Concomitant]
     Dosage: UNK
  5. HYDROCHLOROTHIAZIDE [Concomitant]
     Dosage: UNK
  6. KETOCONAZOLE ARROW [Concomitant]
     Dosage: UNK

REACTIONS (13)
  - Blood glucose decreased [Recovered/Resolved]
  - Hyperhidrosis [Recovered/Resolved]
  - Asthenia [Recovered/Resolved]
  - Inadequate diet [Recovered/Resolved]
  - Influenza like illness [Recovered/Resolved]
  - Sneezing [Recovered/Resolved]
  - Drug ineffective [Recovered/Resolved]
  - Rash [Recovering/Resolving]
  - Hypersensitivity [Not Recovered/Not Resolved]
  - Pyrexia [Recovered/Resolved]
  - Psoriasis [Not Recovered/Not Resolved]
  - Injection site reaction [Recovered/Resolved]
  - Injection site discomfort [Not Recovered/Not Resolved]
